FAERS Safety Report 20105522 (Version 2)
Quarter: 2021Q4

REPORT INFORMATION
  Report Type: Spontaneous
  Country: IL (occurrence: IL)
  Receive Date: 20211124
  Receipt Date: 20211213
  Transmission Date: 20220303
  Serious: Yes (Life-Threatening, Hospitalization, Other)
  Sender: FDA-Public Use
  Company Number: IL-Accord-245726

PATIENT
  Age: 27 Year
  Sex: Female

DRUGS (3)
  1. SERTRALINE [Suspect]
     Active Substance: SERTRALINE HYDROCHLORIDE
     Indication: Generalised anxiety disorder
     Dosage: INCREASED THE SERTRALINE DOSAGE TO 200 MG/DAY
  2. DESOGESTREL W/ESTRADIOL [Concomitant]
     Indication: Oral contraception
  3. Vilanterol trifenatate, Fluticasone furoate [Concomitant]
     Indication: Asthma
     Route: 055

REACTIONS (5)
  - Interstitial lung disease [Recovered/Resolved]
  - Cerebral haemorrhage [Unknown]
  - Respiratory failure [Recovered/Resolved]
  - Pneumomediastinum [Recovered/Resolved]
  - Pneumothorax [Recovered/Resolved]
